FAERS Safety Report 4646656-X (Version None)
Quarter: 2005Q2

REPORT INFORMATION
  Report Type: 
  Country: None (occurrence: None)
  Receive Date: 20050425
  Receipt Date: 20050413
  Transmission Date: 20051028
  Serious: No
  Sender: FDA-Public Use
  Company Number: 05P-163-0297199-00

PATIENT
  Age: 72 Year
  Sex: Female
  Weight: 65.7716 kg

DRUGS (7)
  1. HUMIRA [Suspect]
     Indication: RHEUMATOID ARTHRITIS
     Dosage: 40 MG, 1 IN 2 WK, SUBCUTANEOUS
     Route: 058
     Dates: start: 20040101, end: 20050201
  2. LISINOPRIL [Concomitant]
  3. ATORVASTATIN CALCIUM [Concomitant]
  4. ESOMEPRAZOLE [Concomitant]
  5. ASPIRIN [Concomitant]
  6. CARISOPRODOL [Concomitant]
  7. OXYCOCET [Concomitant]

REACTIONS (3)
  - CONDITION AGGRAVATED [None]
  - NERVE ROOT COMPRESSION [None]
  - SCIATICA [None]
